FAERS Safety Report 6706854-8 (Version None)
Quarter: 2010Q2

REPORT INFORMATION
  Report Type: 
  Country: None (occurrence: None)
  Receive Date: 20100430
  Receipt Date: 20100430
  Transmission Date: 20101027
  Serious: Yes (Hospitalization)
  Sender: FDA-Public Use
  Company Number: None

PATIENT
  Age: 64 Year
  Sex: Male
  Weight: 92.48 kg

DRUGS (13)
  1. AMPYRA [Suspect]
     Indication: MULTIPLE SCLEROSIS
     Dosage: 10MG BID OTHER
  2. CELEXA [Concomitant]
  3. TEGRETOL [Concomitant]
  4. LISINOPRIL [Concomitant]
  5. PLAVIX [Concomitant]
  6. METOPROLOL [Concomitant]
  7. SAW PALMETTO [Concomitant]
  8. CALCIUM CARBONATE [Concomitant]
  9. SIMVASTATIN [Concomitant]
  10. CO-Q10 [Concomitant]
  11. VITAMIN B COMPLEX TAB [Concomitant]
  12. COLACE [Concomitant]
  13. GABAPENTIN [Concomitant]

REACTIONS (2)
  - CONVULSION [None]
  - MENTAL STATUS CHANGES [None]
